FAERS Safety Report 7996964 (Version 3)
Quarter: 2014Q1

REPORT INFORMATION
  Report Type: Spontaneous
  Country: US (occurrence: US)
  Receive Date: 20110618
  Receipt Date: 20140313
  Transmission Date: 20141002
  Serious: Yes (Other)
  Sender: FDA-Public Use
  Company Number: US-BAYER-2011-050529

PATIENT
  Age: 36 Year
  Sex: Female
  Weight: 83.9 kg

DRUGS (7)
  1. YAZ [Suspect]
     Indication: CONTRACEPTION
     Dosage: UNK
     Dates: start: 2008, end: 2010
  2. OCELLA [Suspect]
     Indication: CONTRACEPTION
     Dosage: UNK
     Dates: start: 2008, end: 2010
  3. OCELLA [Suspect]
     Indication: MENORRHAGIA
  4. LEVAQUIN [Concomitant]
  5. TYLENOL [Concomitant]
  6. CIPROFLOXACIN [Concomitant]
     Dosage: 500 MG, UNK
  7. METRONIDAZOLE [Concomitant]
     Dosage: 500 MG, UNK

REACTIONS (3)
  - Gallbladder injury [None]
  - Cholelithiasis [None]
  - Pain [None]
